FAERS Safety Report 9916415 (Version 1)
Quarter: 2014Q1

REPORT INFORMATION
  Report Type: Report from Study
  Country: GB (occurrence: GB)
  Receive Date: 20140221
  Receipt Date: 20140221
  Transmission Date: 20141002
  Serious: Yes (Hospitalization)
  Sender: FDA-Public Use
  Company Number: GB-JNJFOC-20140207839

PATIENT
  Age: 46 Year
  Sex: Male
  Weight: 120 kg

DRUGS (10)
  1. USTEKINUMAB [Suspect]
     Indication: PSORIASIS
     Route: 058
     Dates: start: 20120718, end: 20130515
  2. FERROUS FUMARATE [Concomitant]
     Route: 065
     Dates: start: 20120412
  3. AMLODIPINE [Concomitant]
     Route: 065
     Dates: start: 20080715
  4. ISOSORBIDE MONONITRATE [Concomitant]
     Route: 065
     Dates: start: 20120701
  5. GLYCERYL TRINITRATE [Concomitant]
     Route: 065
     Dates: start: 20080715
  6. CYCLOSPORIN [Concomitant]
     Route: 065
     Dates: start: 20121212
  7. ESOMEPRAZOLE [Concomitant]
     Route: 065
     Dates: start: 20080715
  8. ASPIRIN [Concomitant]
     Route: 065
     Dates: start: 20080715
  9. PERINDOPRIL [Concomitant]
     Route: 065
     Dates: start: 20080715
  10. SIMVASTATIN [Concomitant]
     Route: 065
     Dates: start: 20080715

REACTIONS (2)
  - Speech disorder [Recovered/Resolved]
  - Migraine [Recovered/Resolved]
